FAERS Safety Report 4927049-4 (Version None)
Quarter: 2006Q1

REPORT INFORMATION
  Report Type: 
  Country: None (occurrence: None)
  Receive Date: 20060228
  Receipt Date: 20051012
  Transmission Date: 20060701
  Serious: No
  Sender: FDA-Public Use
  Company Number: US-GLAXOSMITHKLINE-A0578036A

PATIENT
  Age: 47 Year
  Sex: Male

DRUGS (5)
  1. LAMICTAL [Suspect]
     Indication: BIPOLAR DISORDER
     Dosage: 25MG PER DAY
     Route: 048
     Dates: start: 20050923, end: 20051012
  2. DEPAKOTE [Concomitant]
  3. CEPHALOSPORIN [Concomitant]
  4. SEROQUEL [Concomitant]
  5. GEODON [Concomitant]

REACTIONS (2)
  - MOUTH ULCERATION [None]
  - PHARYNGEAL OEDEMA [None]
